FAERS Safety Report 5416388-9 (Version None)
Quarter: 2007Q3

REPORT INFORMATION
  Report Type: 
  Country: None (occurrence: None)
  Receive Date: 20070718
  Receipt Date: 20060726
  Transmission Date: 20080115
  Serious: Yes (Death, Hospitalization, Other)
  Sender: FDA-Public Use
  Company Number: 2006023934

PATIENT
  Age: 67 Year
  Sex: Male
  Weight: 129.2752 kg

DRUGS (9)
  1. CELEBREX [Suspect]
     Indication: ARTHRITIS
     Dosage: 400 MG (200 MG, 2 IN 1 D)
     Dates: start: 19990101
  2. CELEBREX [Suspect]
     Indication: BACK DISORDER
     Dosage: 400 MG (200 MG, 2 IN 1 D)
     Dates: start: 19990101
  3. CELEBREX [Suspect]
     Indication: INTERVERTEBRAL DISC DEGENERATION
     Dosage: 400 MG (200 MG, 2 IN 1 D)
     Dates: start: 19990101
  4. ASPIRIN [Concomitant]
  5. BEXTRA [Concomitant]
  6. DARVOCET (DEXTROPROPXYPHENE NAPSILATE, PARACETAMOL) [Concomitant]
  7. ACETAMINOPHEN [Concomitant]
  8. ULTRAM [Concomitant]
  9. VIOXX [Concomitant]

REACTIONS (1)
  - MYOCARDIAL INFARCTION [None]
